FAERS Safety Report 4862075-5 (Version None)
Quarter: 2005Q4

REPORT INFORMATION
  Report Type: 
  Country: None (occurrence: None)
  Receive Date: 20051221
  Receipt Date: 20051209
  Transmission Date: 20060501
  Serious: Yes (Other)
  Sender: FDA-Public Use
  Company Number: FR-SP-E2005-05270

PATIENT
  Age: 31 Year
  Sex: Female

DRUGS (4)
  1. DT POLIO [Suspect]
     Indication: IMMUNISATION
     Route: 065
     Dates: start: 20051205
  2. DT POLIO [Suspect]
     Route: 065
     Dates: start: 20051205
  3. TUBERTEST [Suspect]
     Indication: TUBERCULIN TEST
     Route: 065
     Dates: start: 20051205
  4. TUBERTEST [Suspect]
     Route: 065
     Dates: start: 20051205

REACTIONS (11)
  - ARTHRALGIA [None]
  - INJECTION SITE HAEMORRHAGE [None]
  - INJECTION SITE REACTION [None]
  - MIGRAINE [None]
  - MIGRAINE WITH AURA [None]
  - MYALGIA [None]
  - OEDEMA PERIPHERAL [None]
  - PHOTOPHOBIA [None]
  - PYREXIA [None]
  - SWELLING [None]
  - SWELLING FACE [None]
